FAERS Safety Report 13827417 (Version 1)
Quarter: 2017Q3

REPORT INFORMATION
  Report Type: Other
  Country: US (occurrence: US)
  Receive Date: 20170802
  Receipt Date: 20170802
  Transmission Date: 20171127
  Serious: Yes (Other)
  Sender: FDA-Public Use
  Company Number: US-THE PROACTIV LLC-2024092

PATIENT
  Age: 16 Year
  Sex: Male

DRUGS (2)
  1. X-OUT WASH-IN TREATMENT [Suspect]
     Active Substance: BENZOYL PEROXIDE
     Indication: ACNE
     Route: 061
     Dates: start: 20170330, end: 20170330
  2. X OUT CLEANSING BODY BAR [Suspect]
     Active Substance: SALICYLIC ACID
     Route: 061
     Dates: start: 20170330, end: 20170330

REACTIONS (2)
  - Dyspnoea [Recovered/Resolved]
  - Swelling [Recovered/Resolved]

NARRATIVE: CASE EVENT DATE: 20170331
